FAERS Safety Report 4742812-0 (Version None)
Quarter: 2005Q3

REPORT INFORMATION
  Report Type: 
  Country: None (occurrence: None)
  Receive Date: 20050811
  Receipt Date: 20050808
  Transmission Date: 20060218
  Serious: Yes (Other)
  Sender: FDA-Public Use
  Company Number: BR-GLAXOSMITHKLINE-A0569586A

PATIENT
  Age: 7 Year
  Sex: Female
  Weight: 18.5 kg

DRUGS (1)
  1. CEFUROXIME AXETIL [Suspect]
     Indication: SINUSITIS
     Dosage: 5ML TWICE PER DAY
     Route: 048
     Dates: start: 20050501, end: 20050601

REACTIONS (1)
  - DIABETES MELLITUS [None]
